FAERS Safety Report 8941847 (Version 2)
Quarter: 2012Q4

REPORT INFORMATION
  Report Type: 
  Country: US (occurrence: US)
  Receive Date: 20121121
  Receipt Date: 20121212
  Transmission Date: 20130627
  Serious: Yes (Death, Other)
  Sender: FDA-Public Use
  Company Number: US-ASTELLAS-1113089

PATIENT
  Sex: Male
  Weight: 54.03 kg

DRUGS (9)
  1. TARCEVA [Suspect]
     Indication: PANCREATIC CARCINOMA
  2. MELOXICAM [Concomitant]
     Route: 065
  3. NEXAVAR [Concomitant]
     Route: 065
  4. LISINOPRIL [Concomitant]
  5. COUMADIN [Interacting]
  6. OXYCODONE [Concomitant]
     Route: 065
  7. MORPHINE [Concomitant]
     Route: 065
  8. METHADONE [Concomitant]
     Route: 065
  9. LOVENOX [Concomitant]
     Route: 058

REACTIONS (16)
  - Death [Fatal]
  - International normalised ratio increased [Unknown]
  - Rash [Unknown]
  - Oedema peripheral [Recovering/Resolving]
  - Pain in extremity [Recovering/Resolving]
  - Abdominal pain [Unknown]
  - Fatigue [Unknown]
  - Decreased appetite [Unknown]
  - Deep vein thrombosis [Unknown]
  - Back pain [Unknown]
  - Neck pain [Unknown]
  - Haematoma [Unknown]
  - Dyspnoea [Unknown]
  - Speech disorder [Unknown]
  - Pyrexia [Recovered/Resolved]
  - Confusional state [Unknown]
